FAERS Safety Report 19563755 (Version 1)
Quarter: 2021Q3

REPORT INFORMATION
  Report Type: Report from Study
  Country: US (occurrence: US)
  Receive Date: 20210714
  Receipt Date: 20210714
  Transmission Date: 20211014
  Serious: Yes (Other)
  Sender: FDA-Public Use
  Company Number: NVSC2021US151615

PATIENT
  Age: 40 Year
  Sex: Female

DRUGS (1)
  1. LEUPROLIDE ACETATE. [Suspect]
     Active Substance: LEUPROLIDE ACETATE
     Indication: BREAST CANCER STAGE III
     Dosage: UNK
     Route: 065
     Dates: start: 2019

REACTIONS (2)
  - Product use in unapproved indication [Unknown]
  - Breast cancer recurrent [Not Recovered/Not Resolved]

NARRATIVE: CASE EVENT DATE: 202011
